FAERS Safety Report 25827449 (Version 2)
Quarter: 2025Q4

REPORT INFORMATION
  Report Type: Report from Study
  Country: US (occurrence: US)
  Receive Date: 20250920
  Receipt Date: 20251026
  Transmission Date: 20260118
  Serious: No
  Sender: TRAVERE THERAPEUTICS
  Company Number: US-TRAVERE-2025TVT01294

PATIENT
  Age: 48 Year
  Sex: Female

DRUGS (12)
  1. FILSPARI [Suspect]
     Active Substance: SPARSENTAN
     Indication: IgA nephropathy
     Route: 048
     Dates: start: 202505
  2. LISINOPRIL [Suspect]
     Active Substance: LISINOPRIL
     Indication: Product used for unknown indication
     Dates: start: 20240821
  3. AMLODIPINE [Concomitant]
     Active Substance: AMLODIPINE BESYLATE
  4. HYDROCHLOROTHIAZIDE [Concomitant]
     Active Substance: HYDROCHLOROTHIAZIDE
  5. FARXIGA [Concomitant]
     Active Substance: DAPAGLIFLOZIN PROPANEDIOL
  6. ATORVASTATIN [Concomitant]
     Active Substance: ATORVASTATIN
  7. BASAGLAR [Concomitant]
     Active Substance: INSULIN GLARGINE
  8. COLACE [Concomitant]
     Active Substance: DOCUSATE SODIUM
  9. FABHALTA [Concomitant]
     Active Substance: IPTACOPAN HYDROCHLORIDE
  10. FERROUS SULFATE [Concomitant]
     Active Substance: FERROUS SULFATE
  11. HUMALOG [Concomitant]
     Active Substance: INSULIN LISPRO
  12. LOKELMA [Concomitant]
     Active Substance: SODIUM ZIRCONIUM CYCLOSILICATE

REACTIONS (6)
  - Blood chloride increased [Unknown]
  - Carbon dioxide decreased [Unknown]
  - Blood albumin decreased [Unknown]
  - Blood alkaline phosphatase increased [Unknown]
  - Somnolence [Unknown]
  - Contraindicated product administered [Unknown]

NARRATIVE: CASE EVENT DATE: 20250510
